FAERS Safety Report 6256124-X (Version None)
Quarter: 2009Q3

REPORT INFORMATION
  Report Type: 
  Country: None (occurrence: None)
  Receive Date: 20090706
  Receipt Date: 20090622
  Transmission Date: 20100115
  Serious: Yes (Other)
  Sender: FDA-Public Use
  Company Number: PHHY2009CA16902

PATIENT
  Sex: Male

DRUGS (1)
  1. SANDOSTATIN LAR [Suspect]
     Indication: CARCINOID SYNDROME
     Dosage: 20 MG, QMO
     Route: 030
     Dates: start: 20090201

REACTIONS (9)
  - ABDOMINAL DISTENSION [None]
  - ABDOMINAL PAIN [None]
  - BILE DUCT STENOSIS [None]
  - BILE DUCT STENT INSERTION [None]
  - BLOOD PRESSURE INCREASED [None]
  - DIARRHOEA [None]
  - HEPATOMEGALY [None]
  - NAIL DISCOLOURATION [None]
  - OCULAR ICTERUS [None]
